FAERS Safety Report 20219706 (Version 1)
Quarter: 2021Q4

REPORT INFORMATION
  Report Type: Spontaneous
  Country: US (occurrence: None)
  Receive Date: 20211222
  Receipt Date: 20211222
  Transmission Date: 20220303
  Serious: Yes (Life-Threatening)
  Sender: FDA-Public Use
  Company Number: None

PATIENT
  Age: 47 Year
  Sex: Female
  Weight: 112.5 kg

DRUGS (1)
  1. CASIRIVIMAB\IMDEVIMAB [Suspect]
     Active Substance: CASIRIVIMAB\IMDEVIMAB
     Indication: COVID-19
     Dosage: ONCE
     Route: 058
     Dates: start: 20211222, end: 20211222

REACTIONS (5)
  - Hot flush [None]
  - Nausea [None]
  - Taste disorder [None]
  - Throat tightness [None]
  - Infusion related reaction [None]

NARRATIVE: CASE EVENT DATE: 20211222
